FAERS Safety Report 22989821 (Version 4)
Quarter: 2023Q4

REPORT INFORMATION
  Report Type: Spontaneous
  Country: US (occurrence: US)
  Receive Date: 20230927
  Receipt Date: 20231003
  Transmission Date: 20240110
  Serious: No
  Sender: FDA-Public Use
  Company Number: US-ABBVIE-5423849

PATIENT
  Sex: Male
  Weight: 98.883 kg

DRUGS (1)
  1. RECTIV [Suspect]
     Active Substance: NITROGLYCERIN
     Indication: Anal fissure
     Dosage: UNK, QD (DAILY DOSE: 2/DAYS)
     Route: 061
     Dates: start: 202309

REACTIONS (1)
  - Headache [Recovering/Resolving]
